FAERS Safety Report 7340050-9 (Version None)
Quarter: 2011Q1

REPORT INFORMATION
  Report Type: 
  Country: None (occurrence: None)
  Receive Date: 20110309
  Receipt Date: 20101122
  Transmission Date: 20110831
  Serious: Yes (Hospitalization)
  Sender: FDA-Public Use
  Company Number: US-BAYER-201035849NA

PATIENT
  Sex: Female
  Weight: 63.492 kg

DRUGS (16)
  1. CLARITIN [Concomitant]
     Indication: MULTIPLE ALLERGIES
  2. BACTRIN [Concomitant]
     Indication: SINUSITIS
     Dosage: UNK UNK, BID
     Dates: start: 20070822
  3. AUGMENTIN '125' [Concomitant]
     Indication: LYMPHADENOPATHY
     Dosage: 125 MG, UNK
     Dates: start: 20080327, end: 20080405
  4. CLARITIN [Concomitant]
     Indication: ASTHMA
     Dosage: UNK
     Dates: start: 20060101, end: 20090101
  5. ALBUTEROL [Concomitant]
     Indication: ASTHMA
     Dosage: UNK
     Dates: start: 20070101, end: 20090101
  6. YAZ [Suspect]
     Indication: PREMENSTRUAL SYNDROME
  7. ALBUTEROL [Concomitant]
     Indication: MULTIPLE ALLERGIES
  8. YAZ [Suspect]
     Indication: MENSTRUAL DISORDER
  9. YASMIN [Suspect]
     Indication: MENSTRUAL DISORDER
  10. SINGULAIR [Concomitant]
     Indication: ASTHMA
     Dosage: UNK
     Dates: start: 20060101, end: 20090101
  11. YAZ [Suspect]
     Indication: ACNE
     Route: 048
     Dates: start: 20061021, end: 20071128
  12. PREVACID [Concomitant]
     Indication: DYSPEPSIA
     Dosage: UNK
     Dates: start: 20070822
  13. YASMIN [Suspect]
     Indication: ACNE
     Route: 048
     Dates: start: 20070904, end: 20081129
  14. YASMIN [Suspect]
     Indication: PREMENSTRUAL SYNDROME
  15. SINGULAIR [Concomitant]
     Indication: MULTIPLE ALLERGIES
  16. CHOLESTYRAMINE [Concomitant]
     Indication: DYSPEPSIA

REACTIONS (8)
  - ABDOMINAL PAIN UPPER [None]
  - GALLBLADDER CHOLESTEROLOSIS [None]
  - GASTROOESOPHAGEAL REFLUX DISEASE [None]
  - DIARRHOEA [None]
  - DEPRESSION [None]
  - CHOLECYSTITIS CHRONIC [None]
  - CHOLELITHIASIS [None]
  - NAUSEA [None]
